FAERS Safety Report 6652831-5 (Version None)
Quarter: 2010Q1

REPORT INFORMATION
  Report Type: 
  Country: None (occurrence: None)
  Receive Date: 20100325
  Receipt Date: 20100325
  Transmission Date: 20100710
  Serious: No
  Sender: FDA-Public Use
  Company Number: None

PATIENT
  Age: 55 Year
  Sex: Female
  Weight: 70.3075 kg

DRUGS (1)
  1. AMBIEN [Suspect]
     Indication: INSOMNIA
     Dosage: 10MG 1-2 TIMES A WEEK, ONLY OCCASIONALLY
     Dates: start: 20080901, end: 20090510

REACTIONS (1)
  - OPTIC DISC HAEMORRHAGE [None]
